FAERS Safety Report 5316604-8 (Version None)
Quarter: 2007Q2

REPORT INFORMATION
  Report Type: 
  Country: None (occurrence: None)
  Receive Date: 20070504
  Receipt Date: 20070424
  Transmission Date: 20071010
  Serious: Yes (Other)
  Sender: FDA-Public Use
  Company Number: US-AMGEN-US221362

PATIENT
  Sex: Male

DRUGS (21)
  1. ARANESP [Suspect]
     Indication: DIALYSIS
     Route: 042
     Dates: start: 20050801
  2. EPOGEN [Suspect]
     Indication: DIALYSIS
     Dates: end: 20050801
  3. SENSIPAR [Concomitant]
     Indication: HYPERPARATHYROIDISM SECONDARY
  4. ZEMPLAR [Concomitant]
     Route: 042
  5. L-CARNITINE [Concomitant]
     Route: 042
  6. METOPROLOL SUCCINATE [Concomitant]
     Route: 048
  7. FOLIC ACID [Concomitant]
     Route: 048
  8. DSS [Concomitant]
  9. STAVUDINE [Concomitant]
     Route: 048
  10. SUSTIVA [Concomitant]
     Route: 048
  11. COUMADIN [Concomitant]
     Route: 048
  12. RENAGEL [Concomitant]
  13. NIFEDIPINE [Concomitant]
     Route: 048
  14. PROTONIX [Concomitant]
     Route: 048
  15. EPIVIR [Concomitant]
     Route: 048
  16. AVAPRO [Concomitant]
     Route: 048
  17. NEURONTIN [Concomitant]
     Route: 048
  18. LIPITOR [Concomitant]
     Route: 048
  19. VITAMIN B-12 [Concomitant]
     Route: 048
  20. TRAMADOL HCL [Concomitant]
     Route: 048
  21. FOSRENOL [Concomitant]
     Route: 048

REACTIONS (1)
  - THERAPEUTIC RESPONSE DECREASED [None]
